FAERS Safety Report 8996834 (Version 1)
Quarter: 2013Q1

REPORT INFORMATION
  Report Type: Spontaneous
  Country: US (occurrence: US)
  Receive Date: 20130104
  Receipt Date: 20130104
  Transmission Date: 20140127
  Serious: Yes (Hospitalization)
  Sender: FDA-Public Use
  Company Number: US-BAYER-2012-136310

PATIENT
  Age: 33 Year
  Sex: Female
  Weight: 110 kg

DRUGS (7)
  1. OCELLA [Suspect]
  2. YASMIN [Suspect]
  3. SYMBICORT [Concomitant]
  4. VITAMIN D [Concomitant]
  5. FISH OIL [Concomitant]
  6. DOXYCYCLINE [Concomitant]
  7. PREDNISONE [Concomitant]

REACTIONS (1)
  - Pulmonary embolism [None]
